FAERS Safety Report 6924375-4 (Version None)
Quarter: 2010Q3

REPORT INFORMATION
  Report Type: 
  Country: None (occurrence: None)
  Receive Date: 20100811
  Receipt Date: 20100811
  Transmission Date: 20110219
  Serious: Yes (Other)
  Sender: FDA-Public Use
  Company Number: None

PATIENT
  Sex: Male
  Weight: 74.8435 kg

DRUGS (1)
  1. AVELOX [Suspect]
     Indication: RESPIRATORY TRACT INFECTION
     Dosage: 400MG QD ORAL
     Route: 048
     Dates: start: 20100624, end: 20100630

REACTIONS (5)
  - ANXIETY [None]
  - ARTHRALGIA [None]
  - INITIAL INSOMNIA [None]
  - PAIN IN EXTREMITY [None]
  - TENDONITIS [None]
